FAERS Safety Report 21377666 (Version 1)
Quarter: 2022Q3

REPORT INFORMATION
  Report Type: Report from Study
  Country: JP (occurrence: JP)
  Receive Date: 20220926
  Receipt Date: 20220926
  Transmission Date: 20221026
  Serious: Yes (Death, Hospitalization, Other)
  Sender: FDA-Public Use
  Company Number: JP-PFIZER INC-2019382631

PATIENT
  Age: 69 Year
  Sex: Female
  Weight: 41.7 kg

DRUGS (4)
  1. LORBRENA [Suspect]
     Active Substance: LORLATINIB
     Indication: Non-small cell lung cancer
     Dosage: 100 MG, 1X/DAY
     Route: 048
     Dates: start: 20190827, end: 20190830
  2. LORBRENA [Suspect]
     Active Substance: LORLATINIB
     Dosage: 75 MG, 1X/DAY
     Route: 048
     Dates: start: 20190904, end: 20191214
  3. BETAMETHASONE [Suspect]
     Active Substance: BETAMETHASONE
     Indication: Malaise
     Dosage: 4 MG, 1X/DAY
     Route: 041
     Dates: start: 20190828, end: 20190905
  4. MAGNESIUM OXIDE [Concomitant]
     Active Substance: MAGNESIUM OXIDE
     Indication: Constipation
     Dosage: 330 MG, 2X/DAY
     Route: 048
     Dates: start: 20190903

REACTIONS (7)
  - Delirium [Recovered/Resolved]
  - Hallucination [Unknown]
  - Hallucination, visual [Unknown]
  - Neoplasm progression [Fatal]
  - Urinary incontinence [Unknown]
  - Soliloquy [Unknown]
  - Low density lipoprotein increased [Recovering/Resolving]

NARRATIVE: CASE EVENT DATE: 20190829
